FAERS Safety Report 20304111 (Version 1)
Quarter: 2022Q1

REPORT INFORMATION
  Report Type: Spontaneous
  Country: DE (occurrence: DE)
  Receive Date: 20220106
  Receipt Date: 20220106
  Transmission Date: 20220423
  Serious: Yes (Hospitalization, Other)
  Sender: FDA-Public Use
  Company Number: DE-ADRED-05804-01

PATIENT
  Age: 67 Year
  Sex: Male
  Weight: 95 kg

DRUGS (15)
  1. CITALOPRAM [Suspect]
     Active Substance: CITALOPRAM HYDROBROMIDE
     Indication: Product used for unknown indication
     Dosage: 20 MILLIGRAM (1-0-0-0, TABLET)
     Route: 048
  2. ASPIRIN [Suspect]
     Active Substance: ASPIRIN
     Indication: Product used for unknown indication
     Dosage: 100 MILLIGRAM (0-0-1-0, TABLET)
     Route: 048
  3. CLOPIDOGREL [Suspect]
     Active Substance: CLOPIDOGREL BISULFATE
     Indication: Product used for unknown indication
     Dosage: 75 MILLIGRAM (0-1-0-0, TABLET)
     Route: 048
  4. FERROGLYCINE SULFATE [Suspect]
     Active Substance: FERROGLYCINE SULFATE
     Indication: Product used for unknown indication
     Dosage: 50 MILLIGRAM (2-0-0-0, CAPSULES)
     Route: 048
  5. INSULIN LISPRO [Concomitant]
     Active Substance: INSULIN LISPRO
     Dosage: BY REGIME, INJECTION SOLUTION/INFUSION SOLUTION
     Route: 058
  6. EZETIMIBE\SIMVASTATIN [Concomitant]
     Active Substance: EZETIMIBE\SIMVASTATIN
     Dosage: 10|20 MG, 0-0-1-0, TABLET
     Route: 048
  7. SITAGLIPTIN [Concomitant]
     Active Substance: SITAGLIPTIN
     Dosage: 50 MILLIGRAM (2-0-0-0, TABLET)
     Route: 048
  8. INSULIN GLARGINE [Concomitant]
     Active Substance: INSULIN GLARGINE
     Dosage: 30 INTERNATIONAL UNIT (0-0-0-1)
     Route: 058
  9. NEBIVOLOL [Concomitant]
     Active Substance: NEBIVOLOL
     Dosage: 5 MILLIGRAM ( 0.5-0-0-0, TABLET)
     Route: 048
  10. METFORMIN [Concomitant]
     Active Substance: METFORMIN HYDROCHLORIDE
     Dosage: 1000 MILLIGRAM (1-0-1-0, TABLET)
     Route: 048
  11. ZOLPIDEM [Concomitant]
     Active Substance: ZOLPIDEM TARTRATE
     Dosage: 5 MILLIGRAM (0-0-0-1, TABLET)
     Route: 048
  12. HUMALOG [Concomitant]
     Active Substance: INSULIN LISPRO
     Dosage: 6-5-4-0, SOLUTION FOR INJECTION/INFUSION
     Route: 058
  13. TRULICITY [Concomitant]
     Active Substance: DULAGLUTIDE
     Dosage: 1.5 MILLIGRAM (INJECTION SOLUTION/INFUSION SOLUTION)
     Route: 058
  14. PROPRANOLOL [Concomitant]
     Active Substance: PROPRANOLOL HYDROCHLORIDE
     Dosage: 10 MILLIGRAM (1-1-1-0, TABLET)
     Route: 048
  15. LANTUS [Concomitant]
     Active Substance: INSULIN GLARGINE
     Dosage: 0-0-0-30, INJECTION SOLUTION/INFUSION SOLUTION
     Route: 058

REACTIONS (5)
  - Haematochezia [Unknown]
  - Angina pectoris [Unknown]
  - Asthenia [Unknown]
  - General physical health deterioration [Unknown]
  - Medication error [Unknown]

NARRATIVE: CASE EVENT DATE: 20200630
